FAERS Safety Report 6595229-0 (Version None)
Quarter: 2010Q1

REPORT INFORMATION
  Report Type: 
  Country: None (occurrence: None)
  Receive Date: 20100212
  Receipt Date: 20100129
  Transmission Date: 20100710
  Serious: Yes (Other)
  Sender: FDA-Public Use
  Company Number: SPV1-2010-00178

PATIENT
  Sex: Male

DRUGS (1)
  1. ADDERALL 15 [Suspect]
     Indication: DRUG USE FOR UNKNOWN INDICATION
     Dosage: 15 MG
     Dates: start: 20090101

REACTIONS (1)
  - NEUTROPENIA [None]
